FAERS Safety Report 8380503-8 (Version None)
Quarter: 2012Q2

REPORT INFORMATION
  Report Type: 
  Country: None (occurrence: None)
  Receive Date: 20120523
  Receipt Date: 20120518
  Transmission Date: 20120825
  Serious: Yes (Other)
  Sender: FDA-Public Use
  Company Number: JP-VIIV HEALTHCARE LIMITED-B0802713A

PATIENT
  Sex: Male

DRUGS (2)
  1. ISENTRESS [Suspect]
     Indication: HIV INFECTION
     Dosage: 800MG PER DAY
     Route: 048
  2. EPZICOM [Suspect]
     Indication: HIV INFECTION
     Route: 048
     Dates: end: 20120517

REACTIONS (1)
  - CREATININE RENAL CLEARANCE DECREASED [None]
